FAERS Safety Report 5036603-3 (Version None)
Quarter: 2006Q2

REPORT INFORMATION
  Report Type: 
  Country: None (occurrence: None)
  Receive Date: 20060614
  Receipt Date: 20060413
  Transmission Date: 20061013
  Serious: Yes (Hospitalization)
  Sender: FDA-Public Use
  Company Number: BDI-008131

PATIENT
  Sex: Male

DRUGS (1)
  1. MULTIHANCE [Suspect]
     Indication: NUCLEAR MAGNETIC RESONANCE IMAGING
     Dosage: 40 ML ONCE IV
     Route: 042
     Dates: start: 20060413, end: 20060413

REACTIONS (3)
  - DYSPNOEA [None]
  - ERYTHEMA [None]
  - SWELLING FACE [None]
